FAERS Safety Report 14074373 (Version 2)
Quarter: 2017Q4

REPORT INFORMATION
  Report Type: Spontaneous
  Country: JP (occurrence: JP)
  Receive Date: 20171011
  Receipt Date: 20171027
  Transmission Date: 20180321
  Serious: Yes (Hospitalization, Other)
  Sender: FDA-Public Use
  Company Number: JP-GLAXOSMITHKLINE-JP2017155611

PATIENT
  Age: 68 Year
  Sex: Male

DRUGS (3)
  1. PREDNISOLONE. [Concomitant]
     Active Substance: PREDNISOLONE
     Indication: BEHCET^S SYNDROME
     Dosage: 12.5 MG, UNK
  2. COLCHICINE. [Concomitant]
     Active Substance: COLCHICINE
     Indication: BEHCET^S SYNDROME
     Dosage: 10 MG, UNK
  3. DICLOFENAC [Suspect]
     Active Substance: DICLOFENAC
     Indication: BEHCET^S SYNDROME
     Dosage: 75 MG, UNK
     Route: 065

REACTIONS (1)
  - Enteritis [Recovering/Resolving]
